FAERS Safety Report 13781985 (Version 2)
Quarter: 2017Q3

REPORT INFORMATION
  Report Type: Report from Study
  Country: US (occurrence: US)
  Receive Date: 20170724
  Receipt Date: 20170725
  Transmission Date: 20171127
  Serious: Yes (Hospitalization)
  Sender: FDA-Public Use
  Company Number: US-GILEAD-2017-0284420

PATIENT
  Age: 45 Year
  Sex: Female

DRUGS (1)
  1. AMBRISENTAN [Suspect]
     Active Substance: AMBRISENTAN
     Indication: PRODUCT USED FOR UNKNOWN INDICATION
     Dosage: 5 MG, UNK
     Route: 065
     Dates: start: 20150424

REACTIONS (5)
  - Chest pain [Unknown]
  - Drug dose omission [Not Recovered/Not Resolved]
  - Unevaluable event [Unknown]
  - Feeling abnormal [Not Recovered/Not Resolved]
  - Dyspnoea [Unknown]
